FAERS Safety Report 9171923 (Version 2)
Quarter: 2013Q2

REPORT INFORMATION
  Report Type: Spontaneous
  Country: AU (occurrence: AU)
  Receive Date: 20130319
  Receipt Date: 20130621
  Transmission Date: 20140414
  Serious: Yes (Other)
  Sender: FDA-Public Use
  Company Number: PHHY2013AU024787

PATIENT
  Age: 63 Year
  Sex: Female

DRUGS (1)
  1. GILENYA [Suspect]
     Indication: RELAPSING-REMITTING MULTIPLE SCLEROSIS
     Dosage: 0.5 MG, QD
     Route: 048
     Dates: start: 20120815, end: 20130315

REACTIONS (4)
  - Drug-induced liver injury [Recovered/Resolved]
  - Blood immunoglobulin G decreased [Recovered/Resolved]
  - Lymphopenia [Recovered/Resolved]
  - Onychomycosis [Recovered/Resolved]
